FAERS Safety Report 4579786-1 (Version None)
Quarter: 2005Q1

REPORT INFORMATION
  Report Type: 
  Country: None (occurrence: None)
  Receive Date: 20050210
  Receipt Date: 20050126
  Transmission Date: 20050727
  Serious: Yes (Death)
  Sender: FDA-Public Use
  Company Number: MEDI-0002632

PATIENT
  Age: 19 Month
  Sex: Female
  Weight: 7.4 kg

DRUGS (6)
  1. SYNAGIS [Suspect]
     Indication: ANTIVIRAL PROPHYLAXIS
     Dosage: 1.1 ML, 1 IN 30 D, INTRAMUSCULAR
     Route: 030
     Dates: start: 20031025, end: 20041112
  2. TIPEPIDINE HIBENZATE (TIPEPIDINE HIBENZATE) [Concomitant]
  3. L-CARBOCISTEINE (C-ARBOCISTEINE) [Concomitant]
  4. CYPROHEPTADINE HCL [Concomitant]
  5. PROCATEROL HCL [Concomitant]
  6. CLARITHROMYCIN [Concomitant]

REACTIONS (5)
  - CYANOSIS [None]
  - DEPRESSED LEVEL OF CONSCIOUSNESS [None]
  - HEART RATE INCREASED [None]
  - PNEUMONIA RESPIRATORY SYNCYTIAL VIRAL [None]
  - RHINORRHOEA [None]
